APPROVED DRUG PRODUCT: XENON XE 133
Active Ingredient: XENON XE-133
Strength: 5-100 CI/CYLINDER
Dosage Form/Route: GAS;INHALATION
Application: N017550 | Product #001
Applicant: GENERAL ELECTRIC CO
Approved: Approved Prior to Jan 1, 1982 | RLD: No | RS: No | Type: DISCN